FAERS Safety Report 7177749-3 (Version None)
Quarter: 2010Q4

REPORT INFORMATION
  Report Type: 
  Country: None (occurrence: None)
  Receive Date: 20101220
  Receipt Date: 20101208
  Transmission Date: 20110411
  Serious: Yes (Hospitalization)
  Sender: FDA-Public Use
  Company Number: NL-MEDIMMUNE-MEDI-0011975

PATIENT
  Sex: Female

DRUGS (2)
  1. SYNAGIS [Suspect]
     Route: 030
     Dates: start: 20101111, end: 20101111
  2. FERRO NOS [Concomitant]
     Dates: start: 20100101

REACTIONS (6)
  - BRADYCARDIA [None]
  - COUGH [None]
  - ENTERITIS INFECTIOUS [None]
  - OLIGODIPSIA [None]
  - RESPIRATORY ARREST [None]
  - RESPIRATORY TRACT INFECTION VIRAL [None]
